FAERS Safety Report 9224475 (Version 1)
Quarter: 2013Q1

REPORT INFORMATION
  Report Type: Spontaneous
  Country: US (occurrence: None)
  Receive Date: 20120926
  Receipt Date: 20120926
  Transmission Date: 20140127
  Serious: Yes (Other)
  Sender: FDA-Public Use
  Company Number: 1246543

PATIENT
  Age: 32 Year
  Sex: Female
  Weight: 153.18 kg

DRUGS (5)
  1. METHOTREXATE [Suspect]
     Indication: MORPHOEA
     Dosage: 0.4 CC, ONCE WEEKLY
     Route: 058
  2. METHOTREXATE [Suspect]
     Indication: SYSTEMIC LUPUS ERYTHEMATOSUS
     Dosage: 0.4 CC, ONCE WEEKLY
     Route: 058
  3. MELOXICAM [Concomitant]
  4. PREDNISONE [Concomitant]
  5. PAIN [Concomitant]

REACTIONS (6)
  - Abscess [None]
  - Nausea [None]
  - Fatigue [None]
  - Myalgia [None]
  - Mood altered [None]
  - Liquid product physical issue [None]
